FAERS Safety Report 8342384-8 (Version None)
Quarter: 2012Q2

REPORT INFORMATION
  Report Type: 
  Country: None (occurrence: None)
  Receive Date: 20120508
  Receipt Date: 20120430
  Transmission Date: 20120825
  Serious: Yes (Hospitalization)
  Sender: FDA-Public Use
  Company Number: US-BIOGENIDEC-2012BI015578

PATIENT
  Sex: Female

DRUGS (3)
  1. TYSABRI [Suspect]
     Indication: MULTIPLE SCLEROSIS
     Route: 042
     Dates: start: 20111230, end: 20111230
  2. OPANA ER [Concomitant]
     Indication: ARTHRALGIA
  3. ROXICODONE [Concomitant]
     Indication: ARTHRALGIA

REACTIONS (3)
  - ARTHRALGIA [None]
  - ARTHROPATHY [None]
  - POSTOPERATIVE THROMBOSIS [None]
